FAERS Safety Report 12269240 (Version 1)
Quarter: 2016Q2

REPORT INFORMATION
  Report Type: Other
  Country: None (occurrence: US)
  Receive Date: 20160414
  Receipt Date: 20160414
  Transmission Date: 20160815
  Serious: No
  Sender: FDA-Public Use
  Company Number: US-LEADING PHARMA-1050575

PATIENT
  Age: 71 Year
  Sex: Female

DRUGS (1)
  1. HYDROCHLOROTHIAZIDE. [Suspect]
     Active Substance: HYDROCHLOROTHIAZIDE

REACTIONS (6)
  - Heart sounds abnormal [None]
  - No therapeutic response [None]
  - Chest pain [None]
  - Blood pressure systolic increased [None]
  - Myocarditis [Unknown]
  - Nausea [None]
